FAERS Safety Report 7704016-9 (Version None)
Quarter: 2011Q3

REPORT INFORMATION
  Report Type: 
  Country: None (occurrence: None)
  Receive Date: 20110725
  Receipt Date: 20110321
  Transmission Date: 20111222
  Serious: Yes (Other)
  Sender: FDA-Public Use
  Company Number: 2011SP012693

PATIENT
  Age: 10 Year
  Sex: Male

DRUGS (2)
  1. ALBUTEROL SULFATE AUTOHALER [Concomitant]
  2. DULERA ORAL INHALATION [Suspect]
     Indication: ASTHMA
     Dosage: 100 MCG; ONCE; INH
     Route: 055

REACTIONS (1)
  - BRONCHOSPASM [None]
